FAERS Safety Report 20329039 (Version 2)
Quarter: 2022Q1

REPORT INFORMATION
  Report Type: Spontaneous
  Country: IR (occurrence: IR)
  Receive Date: 20220112
  Receipt Date: 20220125
  Transmission Date: 20220423
  Serious: Yes (Other)
  Sender: FDA-Public Use
  Company Number: IR-ASTELLAS-2022US001135

PATIENT
  Age: 68 Year
  Sex: Female

DRUGS (1)
  1. VESICARE [Suspect]
     Active Substance: SOLIFENACIN SUCCINATE
     Indication: Hypertonic bladder
     Route: 048
     Dates: start: 20220107, end: 20220110

REACTIONS (5)
  - Eye pain [Recovered/Resolved]
  - Dry mouth [Recovered/Resolved]
  - Fatigue [Recovered/Resolved]
  - Dizziness [Recovered/Resolved]
  - Somnolence [Recovered/Resolved]

NARRATIVE: CASE EVENT DATE: 20220107
